FAERS Safety Report 9093333 (Version 4)
Quarter: 2014Q1

REPORT INFORMATION
  Report Type: Report from Study
  Country: DE (occurrence: DE)
  Receive Date: 20130201
  Receipt Date: 20140310
  Transmission Date: 20141002
  Serious: Yes (Hospitalization, Other)
  Sender: FDA-Public Use
  Company Number: PHHY2012DE086608

PATIENT
  Age: 51 Year
  Sex: Female
  Weight: 71 kg

DRUGS (10)
  1. FTY 720 [Suspect]
     Indication: MULTIPLE SCLEROSIS
     Dosage: 0.5 MG, QD
     Route: 048
     Dates: start: 20110519
  2. ASS [Concomitant]
     Dosage: 100 MG, QD
  3. VOTUM [Concomitant]
     Dosage: 20 MG, QD
  4. HYDROCHLOROTHIAZID [Concomitant]
     Dosage: 12.5 MG, QD
  5. VALPROIC ACID [Concomitant]
     Indication: CONVULSION
     Dosage: 300 MG, QD
     Dates: start: 201108
  6. VALPROIC ACID [Concomitant]
     Dosage: 300 MG, BID
     Dates: start: 201108
  7. GABAPENTIN [Concomitant]
     Indication: CONVULSION
     Dosage: 600 MG, QID
     Dates: start: 201205
  8. GABAPENTIN [Concomitant]
     Dosage: 900 MG, TID
     Dates: start: 201205
  9. VALPROAT CHRONO [Concomitant]
     Dosage: 1050 MG, 600 MG IN THE MORNING, 450 MG IN THE EVENING
     Dates: start: 201301
  10. VALPROAT CHRONO [Concomitant]
     Dosage: 600 MG, BID

REACTIONS (9)
  - Postictal paralysis [Recovered/Resolved]
  - Partial seizures [Recovered/Resolved]
  - Epilepsy [Recovered/Resolved]
  - Convulsion [Recovered/Resolved]
  - Hyperventilation [Recovered/Resolved]
  - Aphasia [Recovered/Resolved]
  - Hemiparesis [Recovered/Resolved]
  - Electroencephalogram abnormal [Unknown]
  - Lymphocyte count decreased [Unknown]
